FAERS Safety Report 6547008-8 (Version None)
Quarter: 2010Q1

REPORT INFORMATION
  Report Type: 
  Country: None (occurrence: None)
  Receive Date: 20100122
  Receipt Date: 20100121
  Transmission Date: 20100710
  Serious: Yes (Life-Threatening)
  Sender: FDA-Public Use
  Company Number: B0626457A

PATIENT
  Sex: Female
  Weight: 70 kg

DRUGS (6)
  1. ZANAMIVIR [Suspect]
     Indication: H1N1 INFLUENZA
     Route: 042
     Dates: start: 20091209, end: 20091221
  2. ZANAMIVIR [Suspect]
     Dosage: 25MG FOUR TIMES PER DAY
     Route: 055
     Dates: start: 20091209, end: 20091212
  3. COTRIM [Suspect]
     Indication: PROPHYLAXIS
     Dosage: 960MG THREE TIMES PER WEEK
     Route: 002
     Dates: start: 20091121, end: 20100108
  4. VORICONAZOLE [Suspect]
     Indication: BRONCHOPULMONARY ASPERGILLOSIS
     Dosage: 200MG TWICE PER DAY
     Route: 042
     Dates: start: 20091224, end: 20100102
  5. VORICONAZOLE [Suspect]
     Dosage: 200MG TWICE PER DAY
     Route: 002
     Dates: start: 20100102, end: 20100109
  6. CIPROFLOXACIN [Suspect]
     Indication: BRONCHOPULMONARY ASPERGILLOSIS
     Dosage: 400MG THREE TIMES PER DAY
     Route: 042
     Dates: start: 20091230, end: 20100111

REACTIONS (1)
  - PANCYTOPENIA [None]
